FAERS Safety Report 7987741-4 (Version None)
Quarter: 2011Q4

REPORT INFORMATION
  Report Type: 
  Country: None (occurrence: None)
  Receive Date: 20111216
  Receipt Date: 20110504
  Transmission Date: 20120403
  Serious: No
  Sender: FDA-Public Use
  Company Number: US-BRISTOL-MYERS SQUIBB COMPANY-15718638

PATIENT
  Age: 8 Year
  Sex: Male

DRUGS (3)
  1. RISPERIDONE [Concomitant]
  2. GUANFACINE HYDROCHLORIDE [Concomitant]
  3. ABILIFY [Suspect]
     Dosage: 2 DOSES
     Route: 048
     Dates: start: 20110503

REACTIONS (4)
  - VOMITING [None]
  - TACHYCARDIA [None]
  - HEADACHE [None]
  - NAUSEA [None]
